FAERS Safety Report 7328825-3 (Version None)
Quarter: 2011Q1

REPORT INFORMATION
  Report Type: 
  Country: None (occurrence: None)
  Receive Date: 20110303
  Receipt Date: 20110223
  Transmission Date: 20110831
  Serious: Yes (Other)
  Sender: FDA-Public Use
  Company Number: US-JNJFOC-20110208709

PATIENT
  Sex: Female
  Weight: 70.76 kg

DRUGS (4)
  1. REMICADE [Suspect]
     Route: 042
  2. REMICADE [Suspect]
     Route: 042
  3. REMICADE [Suspect]
     Indication: CROHN'S DISEASE
     Route: 042
  4. REMICADE [Suspect]
     Route: 042

REACTIONS (5)
  - ROAD TRAFFIC ACCIDENT [None]
  - BACK PAIN [None]
  - CONVULSION [None]
  - SPINAL OPERATION [None]
  - ISCHAEMIC STROKE [None]
